FAERS Safety Report 8496444-1 (Version None)
Quarter: 2012Q3

REPORT INFORMATION
  Report Type: 
  Country: None (occurrence: None)
  Receive Date: 20120709
  Receipt Date: 20120627
  Transmission Date: 20120928
  Serious: Yes (Hospitalization)
  Sender: FDA-Public Use
  Company Number: JP-BRISTOL-MYERS SQUIBB COMPANY-16727273

PATIENT

DRUGS (3)
  1. IRINOTECAN HCL [Concomitant]
     Indication: RECTAL CANCER
     Route: 042
  2. TS-1 [Concomitant]
     Indication: RECTAL CANCER
     Route: 042
  3. ERBITUX [Suspect]
     Indication: RECTAL CANCER
     Dosage: 250MG/M2,1 IN 1WEEK
     Route: 042

REACTIONS (1)
  - RECTAL PERFORATION [None]
